FAERS Safety Report 13762424 (Version 1)
Quarter: 2017Q3

REPORT INFORMATION
  Report Type: Spontaneous
  Country: US (occurrence: US)
  Receive Date: 20170717
  Receipt Date: 20170717
  Transmission Date: 20171127
  Serious: Yes (Hospitalization)
  Sender: FDA-Public Use
  Company Number: None

PATIENT
  Age: 75 Year
  Sex: Female
  Weight: 42.75 kg

DRUGS (1)
  1. PROLIA [Suspect]
     Active Substance: DENOSUMAB
     Indication: OSTEOPOROSIS
     Dosage: ?          OTHER STRENGTH:MG;QUANTITY:1 PREFILLED  SYRINGE;OTHER FREQUENCY:6 MO;OTHER ROUTE:HIP?

REACTIONS (16)
  - Limb injury [None]
  - Muscle atrophy [None]
  - Postoperative wound infection [None]
  - Dysgeusia [None]
  - Hypotension [None]
  - Cardiac disorder [None]
  - Intestinal resection [None]
  - Skin exfoliation [None]
  - Weight decreased [None]
  - Incision site haemorrhage [None]
  - Pain [None]
  - Loss of consciousness [None]
  - Fall [None]
  - Malaise [None]
  - Heart rate decreased [None]
  - Bedridden [None]

NARRATIVE: CASE EVENT DATE: 20170324
